FAERS Safety Report 6603501-0 (Version None)
Quarter: 2010Q1

REPORT INFORMATION
  Report Type: 
  Country: None (occurrence: None)
  Receive Date: 20100226
  Receipt Date: 20090803
  Transmission Date: 20100710
  Serious: No
  Sender: FDA-Public Use
  Company Number: A0800137A

PATIENT
  Age: 52 Year
  Sex: Female

DRUGS (5)
  1. VALTREX [Suspect]
     Indication: GENITAL HERPES
     Dosage: 500MG THREE TIMES PER DAY
     Route: 048
     Dates: start: 20080101
  2. VALTREX [Suspect]
     Dosage: 500MG PER DAY
     Route: 048
     Dates: start: 20090629
  3. LUNESTA [Concomitant]
     Indication: INSOMNIA
  4. TRAZODONE HCL [Concomitant]
  5. AMBIEN [Concomitant]
     Indication: INSOMNIA

REACTIONS (2)
  - DRUG INEFFECTIVE [None]
  - HERPES VIRUS INFECTION [None]
